FAERS Safety Report 16655299 (Version 14)
Quarter: 2025Q2

REPORT INFORMATION
  Report Type: Spontaneous
  Country: US (occurrence: US)
  Receive Date: 20190801
  Receipt Date: 20250627
  Transmission Date: 20250716
  Serious: Yes (Other)
  Sender: PFIZER
  Company Number: US-PFIZER INC-2019322876

PATIENT
  Age: 64 Year
  Sex: Male

DRUGS (4)
  1. BENEFIX [Suspect]
     Active Substance: COAGULATION FACTOR IX RECOMBINANT HUMAN\ISOPROPYL ALCOHOL
     Indication: Haemorrhage
     Dosage: 7700 UNITS (+/-10%) = 100 UNITS/KG DAILY X1
     Route: 042
  2. BENEFIX [Suspect]
     Active Substance: COAGULATION FACTOR IX RECOMBINANT HUMAN\ISOPROPYL ALCOHOL
     Dosage: DAY 1 THRY DAY LO INFUSE 3850 UNITS (+/-10%) = 50 U/KG ONCE DAILY FOR TEN DAYS
  3. BENEFIX [Suspect]
     Active Substance: COAGULATION FACTOR IX RECOMBINANT HUMAN\ISOPROPYL ALCOHOL
     Dosage: UNK, 1X/DAY (7900 UNITS (+/-10%) = 100 UNITS/KG DAILY X1)
  4. BENEFIX [Suspect]
     Active Substance: COAGULATION FACTOR IX RECOMBINANT HUMAN\ISOPROPYL ALCOHOL
     Dosage: UNK, 1X/DAY (3000IU + 1000IU FOR 3850 IU (+/-10%) ONCE DAILY ON POST OP DAYS 15-21)

REACTIONS (2)
  - Haemorrhage [Unknown]
  - Post procedural haemorrhage [Not Recovered/Not Resolved]
